FAERS Safety Report 16945273 (Version 1)
Quarter: 2019Q4

REPORT INFORMATION
  Report Type: Spontaneous
  Country: US (occurrence: US)
  Receive Date: 20191021
  Receipt Date: 20191021
  Transmission Date: 20200122
  Serious: Yes (Disabling)
  Sender: FDA-Public Use
  Company Number: None

PATIENT
  Age: 71 Year
  Sex: Male
  Weight: 101.25 kg

DRUGS (1)
  1. TRULICITY [Suspect]
     Active Substance: DULAGLUTIDE
     Indication: TYPE 2 DIABETES MELLITUS
     Dosage: ?          QUANTITY:1 INJECTION(S);OTHER FREQUENCY:ONE PER WEEK;OTHER ROUTE:INJECT WEEKLY?
     Dates: start: 20190808, end: 20190911

REACTIONS (2)
  - Weight decreased [None]
  - Gastrointestinal disorder [None]

NARRATIVE: CASE EVENT DATE: 20191020
